FAERS Safety Report 4362531-2 (Version None)
Quarter: 2004Q2

REPORT INFORMATION
  Report Type: 
  Country: None (occurrence: None)
  Receive Date: 20040521
  Receipt Date: 20040416
  Transmission Date: 20050107
  Serious: Yes (Other)
  Sender: FDA-Public Use
  Company Number: GB-BRISTOL-MYERS SQUIBB COMPANY-12592747

PATIENT
  Sex: Female

DRUGS (1)
  1. APROVEL [Suspect]
     Route: 048

REACTIONS (4)
  - FATIGUE [None]
  - HEPATITIS [None]
  - JOINT SWELLING [None]
  - NAUSEA [None]
